FAERS Safety Report 26060926 (Version 1)
Quarter: 2025Q4

REPORT INFORMATION
  Report Type: Spontaneous
  Country: US (occurrence: US)
  Receive Date: 20251118
  Receipt Date: 20251118
  Transmission Date: 20260117
  Serious: No
  Sender: ALVOGEN
  Company Number: US-ALVOGEN-2025098637

PATIENT
  Sex: Female
  Weight: 63 kg

DRUGS (9)
  1. TERIPARATIDE [Suspect]
     Active Substance: TERIPARATIDE
     Indication: Osteoporosis
     Dosage: START DATE: 1 YEAR AGO?STRENGTH: 250MCG/ML
     Route: 058
     Dates: start: 2024
  2. TERIPARATIDE [Suspect]
     Active Substance: TERIPARATIDE
     Indication: Osteoporosis
     Dosage: STRENGTH: 250MCG/ML
     Route: 058
     Dates: start: 202506
  3. TERIPARATIDE [Suspect]
     Active Substance: TERIPARATIDE
     Indication: Osteoporosis
     Dosage: STRENGTH: 250MCG/ML?EXPIRATION DATE: NOV-2026?3RD PEN; RECEIVED ON 19-AUG-2025
     Route: 058
     Dates: start: 20250820
  4. Vybismo [Concomitant]
     Indication: Product used for unknown indication
  5. VITAMIN D [Concomitant]
     Active Substance: VITAMIN D NOS
     Indication: Product used for unknown indication
  6. VITAMIN B12 [Concomitant]
     Active Substance: CYANOCOBALAMIN
     Indication: Product used for unknown indication
  7. ASPIRIN [Concomitant]
     Active Substance: ASPIRIN
     Indication: Product used for unknown indication
  8. CALCIUM [Concomitant]
     Active Substance: CALCIUM
     Indication: Product used for unknown indication
  9. MAGNESIUM [Concomitant]
     Active Substance: MAGNESIUM
     Indication: Product used for unknown indication

REACTIONS (7)
  - Constipation [Recovering/Resolving]
  - Device malfunction [Unknown]
  - Device operational issue [Unknown]
  - Product dose omission issue [Unknown]
  - Product packaging quantity issue [Unknown]
  - Wrong technique in product usage process [Unknown]
  - Device defective [Unknown]

NARRATIVE: CASE EVENT DATE: 20250101
